FAERS Safety Report 16722168 (Version 1)
Quarter: 2019Q3

REPORT INFORMATION
  Report Type: Spontaneous
  Country: US (occurrence: US)
  Receive Date: 20190820
  Receipt Date: 20190820
  Transmission Date: 20191005
  Serious: No
  Sender: FDA-Public Use
  Company Number: US-BRAINTREE LABORATORIES-190076

PATIENT
  Age: 67 Year
  Sex: Male
  Weight: 66.22 kg

DRUGS (1)
  1. GOLYTELY [Suspect]
     Active Substance: POLYETHYLENE GLYCOL 3350\POTASSIUM CHLORIDE\SODIUM BICARBONATE\SODIUM CHLORIDE\SODIUM SULFATE ANHYDROUS
     Indication: COLONOSCOPY
     Dosage: UNK
     Route: 048
     Dates: start: 20181210, end: 20181210

REACTIONS (12)
  - Scrotal swelling [None]
  - Urinary retention [None]
  - Decreased appetite [None]
  - Asthenia [None]
  - Skin discolouration [None]
  - Cold sweat [None]
  - Gastrointestinal pain [None]
  - Gastrooesophageal reflux disease [None]
  - Diarrhoea [None]
  - Constipation [None]
  - Haemorrhoids [None]
  - Drug ineffective [None]

NARRATIVE: CASE EVENT DATE: 20181211
